FAERS Safety Report 6210774-5 (Version None)
Quarter: 2009Q2

REPORT INFORMATION
  Report Type: 
  Country: None (occurrence: None)
  Receive Date: 20090601
  Receipt Date: 20090528
  Transmission Date: 20091009
  Serious: No
  Sender: FDA-Public Use
  Company Number: US-B.I. PHARMACEUTICALS,INC./RIDGEFIELD-2009-BP-06611BP

PATIENT
  Sex: Male

DRUGS (12)
  1. ZANTAC 150 [Suspect]
     Indication: DYSPEPSIA
     Dosage: 150MG
     Route: 048
     Dates: start: 20090525, end: 20090527
  2. PREVACID [Concomitant]
     Indication: ULCER
     Dates: start: 19990101
  3. GABAPENTIN [Concomitant]
     Indication: NEUROPATHY PERIPHERAL
     Dates: start: 19890101
  4. GLYBURIDE [Concomitant]
     Indication: DIABETES MELLITUS
     Dates: start: 20070101
  5. DOXAZOSIN MESYLATE [Concomitant]
     Indication: HYPERTENSION
     Dates: start: 19890101
  6. RAMIPRIL [Concomitant]
     Indication: HYPERTENSION
     Dates: start: 19890101
  7. METOPROLOL SUCCINATE [Concomitant]
     Indication: ATRIAL FIBRILLATION
     Dates: start: 20090104
  8. ASPIRIN [Concomitant]
     Indication: PROPHYLAXIS
     Dates: start: 19890101
  9. CRESTOR [Concomitant]
     Indication: BLOOD CHOLESTEROL INCREASED
     Dates: start: 19910101
  10. WARFARIN SODIUM [Concomitant]
     Indication: ATRIAL FIBRILLATION
     Dates: start: 20090104
  11. TRAMADOL HCL [Concomitant]
     Indication: NEUROPATHY PERIPHERAL
  12. ZOLPIDEM TARTRATE [Concomitant]
     Indication: ATRIAL FIBRILLATION
     Dates: start: 20090104

REACTIONS (2)
  - LIMB DISCOMFORT [None]
  - MUSCULOSKELETAL DISCOMFORT [None]
